FAERS Safety Report 6404849-5 (Version None)
Quarter: 2009Q4

REPORT INFORMATION
  Report Type: 
  Country: None (occurrence: None)
  Receive Date: 20091018
  Receipt Date: 20091007
  Transmission Date: 20100525
  Serious: Yes (Other)
  Sender: FDA-Public Use
  Company Number: IE-ABBOTT-09P-229-0594315-00

PATIENT
  Sex: Male
  Weight: 66.6 kg

DRUGS (15)
  1. HUMIRA [Suspect]
     Indication: RHEUMATOID ARTHRITIS
     Route: 058
     Dates: start: 20080601
  2. NUSEALS ASPIRN [Concomitant]
     Indication: DRUG USE FOR UNKNOWN INDICATION
  3. LANOXIN [Concomitant]
     Indication: DRUG USE FOR UNKNOWN INDICATION
  4. ELTROXIN [Concomitant]
     Indication: DRUG USE FOR UNKNOWN INDICATION
  5. ARAVA [Concomitant]
     Indication: DRUG USE FOR UNKNOWN INDICATION
  6. LIPANTIL SUPRA [Concomitant]
     Indication: DRUG USE FOR UNKNOWN INDICATION
  7. CRESTOR [Concomitant]
     Indication: DRUG USE FOR UNKNOWN INDICATION
  8. DIAMICRON MR [Concomitant]
     Indication: DRUG USE FOR UNKNOWN INDICATION
  9. ZOTON [Concomitant]
     Indication: DRUG USE FOR UNKNOWN INDICATION
  10. IMDUR [Concomitant]
     Indication: DRUG USE FOR UNKNOWN INDICATION
  11. GALFER [Concomitant]
     Indication: DRUG USE FOR UNKNOWN INDICATION
  12. BUMEX [Concomitant]
     Indication: DRUG USE FOR UNKNOWN INDICATION
  13. EMCOR [Concomitant]
     Indication: DRUG USE FOR UNKNOWN INDICATION
  14. EMCOR [Concomitant]
  15. ONE ALPHA [Concomitant]
     Indication: DRUG USE FOR UNKNOWN INDICATION

REACTIONS (3)
  - INJECTION SITE IRRITATION [None]
  - INJECTION SITE PAIN [None]
  - PAIN [None]
